FAERS Safety Report 9501090 (Version 1)
Quarter: 2013Q1

REPORT INFORMATION
  Report Type: Spontaneous
  Country: US (occurrence: None)
  Receive Date: 20130107
  Receipt Date: 20130107
  Transmission Date: 20140127
  Serious: No
  Sender: FDA-Public Use
  Company Number: PHEH2012US021357

PATIENT
  Age: 50 Year
  Sex: Female
  Weight: 66.2 kg

DRUGS (9)
  1. GILENYA (FINGOLIMOD) CAPSULE, 0.5MG [Suspect]
     Route: 048
  2. OXYBUTYNIN (OXYBUTYNIN) TABLET [Concomitant]
  3. TOPAMAX (TOPIRAMATE) TABLET [Concomitant]
  4. TRAZODONE (TRAZODONE) TABLET [Concomitant]
  5. CITALOPRAM (CITALOPRAM) TABLET [Concomitant]
  6. BACLOFEN (BACLOFEN) TABLET [Concomitant]
  7. VITAMIN D3 (COLECALCIFEROL) CAPSULE [Concomitant]
  8. VITAMIN B12 (CYANOCOBALAMIN) TABLET [Concomitant]
  9. PROVIGIL (MODAFINIL) TABLET [Concomitant]

REACTIONS (2)
  - White blood cell count decreased [None]
  - Inappropriate schedule of drug administration [None]
